FAERS Safety Report 10195956 (Version 1)
Quarter: 2014Q2

REPORT INFORMATION
  Report Type: Spontaneous
  Country: NO (occurrence: NO)
  Receive Date: 20140527
  Receipt Date: 20140527
  Transmission Date: 20141212
  Serious: Yes (Death)
  Sender: FDA-Public Use
  Company Number: PHHY2014NO059670

PATIENT
  Age: 31 Year
  Sex: Male

DRUGS (6)
  1. TEGRETOL [Suspect]
     Indication: EPILEPSY
     Dosage: UNK UKN, UNK
  2. TRIMONIL [Suspect]
     Indication: EPILEPSY
     Dosage: UNK UKN, UNK
  3. RIVOTRIL [Suspect]
     Indication: EPILEPSY
     Dosage: UNK UKN, UNK
  4. NEURONTIN [Suspect]
     Indication: EPILEPSY
     Dosage: UNK UKN, UNK
  5. LAMICTAL [Suspect]
     Indication: EPILEPSY
     Dosage: UNK UKN, UNK
  6. KEPPRA [Suspect]
     Indication: EPILEPSY
     Dosage: UNK UKN, UNK

REACTIONS (1)
  - Acute hepatic failure [Fatal]
